FAERS Safety Report 12254164 (Version 1)
Quarter: 2016Q2

REPORT INFORMATION
  Report Type: Report from Study
  Country: US (occurrence: US)
  Receive Date: 20160411
  Receipt Date: 20160411
  Transmission Date: 20160815
  Serious: Yes (Life-Threatening, Hospitalization, Other)
  Sender: FDA-Public Use
  Company Number: US-GILEAD-2016-0207358

PATIENT
  Age: 69 Year
  Sex: Female

DRUGS (26)
  1. AMBRISENTAN [Suspect]
     Active Substance: AMBRISENTAN
     Indication: PULMONARY HYPERTENSION
     Dosage: 5 MG, QD
     Route: 065
     Dates: start: 20130419
  2. FONDAPARINUX [Concomitant]
     Active Substance: FONDAPARINUX
  3. IPRATROPIUM [Concomitant]
     Active Substance: IPRATROPIUM
  4. VIOSES [Concomitant]
  5. PREDNISONE. [Concomitant]
     Active Substance: PREDNISONE
  6. METOPROLOL. [Concomitant]
     Active Substance: METOPROLOL
  7. IBUPROFEN. [Concomitant]
     Active Substance: IBUPROFEN
  8. BALANCE B 100 [Concomitant]
  9. ENFAMIL TRI VI SOL WITH IRON [Concomitant]
  10. FLUTICASONE [Concomitant]
     Active Substance: FLUTICASONE\FLUTICASONE PROPIONATE
  11. LACTULOSE. [Concomitant]
     Active Substance: LACTULOSE
  12. LINZESS [Concomitant]
     Active Substance: LINACLOTIDE
  13. TRAMADOL. [Concomitant]
     Active Substance: TRAMADOL
  14. ADCIRCA [Concomitant]
     Active Substance: TADALAFIL
     Indication: PULMONARY HYPERTENSION
     Dosage: 20 MG, BID
  15. AMOXICILLIN CLAVULANIC ACID [Concomitant]
     Active Substance: AMOXICILLIN\CLAVULANIC ACID
  16. DIGOX                              /00017701/ [Concomitant]
  17. SMZ-TMP [Concomitant]
     Active Substance: SULFAMETHOXAZOLE\TRIMETHOPRIM
  18. METHYLPRED [Concomitant]
     Active Substance: METHYLPREDNISOLONE
  19. POLYETHYLENE GLYCOL [Concomitant]
     Active Substance: POLYETHYLENE GLYCOLS
  20. VOLTAREN [Concomitant]
     Active Substance: DICLOFENAC SODIUM
  21. OMEPRAZOLE. [Concomitant]
     Active Substance: OMEPRAZOLE
  22. CEPHALEXIN                         /00145501/ [Concomitant]
     Active Substance: CEPHALEXIN
  23. MUPIROCIN. [Concomitant]
     Active Substance: MUPIROCIN
  24. XIFAXAN [Concomitant]
     Active Substance: RIFAXIMIN
  25. BUDESONIDE. [Concomitant]
     Active Substance: BUDESONIDE
  26. DICYCLOMINE                        /00068601/ [Concomitant]
     Active Substance: DICYCLOMINE HYDROCHLORIDE

REACTIONS (1)
  - Pulmonary thrombosis [Recovered/Resolved]

NARRATIVE: CASE EVENT DATE: 2016
